FAERS Safety Report 7284867-8 (Version None)
Quarter: 2011Q1

REPORT INFORMATION
  Report Type: 
  Country: None (occurrence: None)
  Receive Date: 20110210
  Receipt Date: 20110201
  Transmission Date: 20110831
  Serious: Yes (Hospitalization)
  Sender: FDA-Public Use
  Company Number: AU-AMGEN-AUSSP2011003006

PATIENT
  Age: 52 Year
  Sex: Female

DRUGS (2)
  1. ENBREL [Suspect]
     Indication: RHEUMATOID ARTHRITIS
     Dosage: 50 MG, WEEKLY
     Route: 058
     Dates: start: 20090114, end: 20101214
  2. ENBREL [Suspect]
     Dosage: 50 MG, WEEKLY
     Route: 058

REACTIONS (2)
  - MESENTERITIS [None]
  - ABDOMINAL PAIN LOWER [None]
